FAERS Safety Report 16537861 (Version 1)
Quarter: 2019Q3

REPORT INFORMATION
  Report Type: Report from Study
  Country: US (occurrence: US)
  Receive Date: 20190708
  Receipt Date: 20190708
  Transmission Date: 20191004
  Serious: Yes (Other)
  Sender: FDA-Public Use
  Company Number: US-SA-2019SA173762

PATIENT
  Age: 58 Year
  Sex: Female

DRUGS (1)
  1. INSULIN GLARGINE [Suspect]
     Active Substance: INSULIN GLARGINE
     Indication: TYPE 2 DIABETES MELLITUS
     Dosage: 34 IU, QD/ ONCE IN THE EVENING BEFORE GOING TO BED
     Route: 058
     Dates: start: 201902

REACTIONS (6)
  - Gout [Recovering/Resolving]
  - Pain in extremity [Recovering/Resolving]
  - Loss of personal independence in daily activities [Recovering/Resolving]
  - Gait inability [Recovering/Resolving]
  - Wrong technique in product usage process [Unknown]
  - Product dose omission [Not Recovered/Not Resolved]
